FAERS Safety Report 20702138 (Version 2)
Quarter: 2022Q2

REPORT INFORMATION
  Report Type: Report from Study
  Country: JP (occurrence: JP)
  Receive Date: 20220412
  Receipt Date: 20220526
  Transmission Date: 20220720
  Serious: Yes (Death, Other)
  Sender: FDA-Public Use
  Company Number: JP-UCBSA-2021002195

PATIENT
  Age: 48 Year
  Sex: Male

DRUGS (44)
  1. LACOSAMIDE [Suspect]
     Active Substance: LACOSAMIDE
     Indication: Epilepsy
     Dosage: 50 MILLIGRAM, 2X/DAY (BID)
     Route: 048
     Dates: start: 20191129, end: 20191210
  2. LACOSAMIDE [Suspect]
     Active Substance: LACOSAMIDE
     Indication: Partial seizures with secondary generalisation
     Dosage: 100 MILLIGRAM, 2X/DAY (BID)
     Route: 048
     Dates: start: 20191211, end: 20200401
  3. LACOSAMIDE [Suspect]
     Active Substance: LACOSAMIDE
     Dosage: 200 MILLIGRAM, 2X/DAY (BID)
     Route: 048
     Dates: start: 20200402, end: 20201005
  4. VIMPAT [Suspect]
     Active Substance: LACOSAMIDE
     Indication: Epilepsy
     Dosage: 50 MILLIGRAM, 2X/DAY (BID)
     Dates: end: 20191204
  5. VIMPAT [Suspect]
     Active Substance: LACOSAMIDE
     Indication: Partial seizures with secondary generalisation
  6. VIMPAT [Suspect]
     Active Substance: LACOSAMIDE
     Indication: Epilepsy
     Dosage: 50 MILLIGRAM, 2X/DAY (BID)
     Route: 041
     Dates: start: 20191205
  7. VIMPAT [Suspect]
     Active Substance: LACOSAMIDE
     Indication: Partial seizures with secondary generalisation
  8. PHENYTOIN [Suspect]
     Active Substance: PHENYTOIN
     Indication: Epilepsy
     Dosage: 200 MG DAILY
     Route: 048
     Dates: start: 20191211, end: 20191216
  9. PHENYTOIN [Suspect]
     Active Substance: PHENYTOIN
     Indication: Partial seizures with secondary generalisation
  10. LEVETIRACETAM [Concomitant]
     Active Substance: LEVETIRACETAM
     Indication: Epilepsy
     Dosage: 1000 MG DAILY
     Route: 048
  11. LEVETIRACETAM [Concomitant]
     Active Substance: LEVETIRACETAM
     Indication: Partial seizures with secondary generalisation
  12. ZONISAMIDE [Concomitant]
     Active Substance: ZONISAMIDE
     Indication: Epilepsy
     Dosage: 400 MG DAILY
     Route: 048
  13. ZONISAMIDE [Concomitant]
     Active Substance: ZONISAMIDE
     Indication: Partial seizures with secondary generalisation
  14. MINOCYCLINE HYDROCHLORIDE [Concomitant]
     Active Substance: MINOCYCLINE HYDROCHLORIDE
     Indication: Product used for unknown indication
     Dosage: 200 MG DAILY
     Route: 048
     Dates: end: 20200110
  15. LICORICE ROOT EXTRACT\RHUBARB [Concomitant]
     Active Substance: LICORICE ROOT EXTRACT\RHUBARB
     Indication: Product used for unknown indication
     Dosage: 3 GRAM DAILY
     Dates: end: 20191231
  16. SODIUM CHLORIDE [Concomitant]
     Active Substance: SODIUM CHLORIDE
     Indication: Product used for unknown indication
     Dosage: 4 GRAM DAILY
     Dates: end: 20200106
  17. BEOVA [Concomitant]
     Indication: Product used for unknown indication
     Dosage: 50 GRAM DAILY
     Route: 048
  18. SODIUM PICOSULFATE [Concomitant]
     Active Substance: SODIUM PICOSULFATE
     Indication: Product used for unknown indication
     Dosage: UNK
  19. DIAZEPAM [Concomitant]
     Active Substance: DIAZEPAM
     Indication: Epilepsy
     Dosage: 10 MG DAILY
  20. DIAZEPAM [Concomitant]
     Active Substance: DIAZEPAM
     Indication: Partial seizures with secondary generalisation
  21. NEOPHAGEN [GLYCYRRHIZINATE POTASSIUM] [Concomitant]
     Indication: Product used for unknown indication
     Dosage: 40 ML DAILY
     Dates: end: 20191202
  22. DIAMOX SEQUELS [Concomitant]
     Active Substance: ACETAZOLAMIDE
     Indication: Epilepsy
     Dosage: 500 MG DAILY
     Dates: end: 20191212
  23. DIAMOX SEQUELS [Concomitant]
     Active Substance: ACETAZOLAMIDE
     Indication: Partial seizures with secondary generalisation
  24. FOSPHENYTOIN SODIUM [Concomitant]
     Active Substance: FOSPHENYTOIN SODIUM
     Indication: Epilepsy
     Dosage: 750 MG DAILY
     Dates: end: 20191210
  25. FOSPHENYTOIN SODIUM [Concomitant]
     Active Substance: FOSPHENYTOIN SODIUM
     Indication: Partial seizures with secondary generalisation
  26. PHENOBAL [PHENOBARBITAL SODIUM] [Concomitant]
     Indication: Epilepsy
     Dosage: 200 MG DAILY
     Dates: start: 20191204, end: 20191216
  27. PHENOBAL [PHENOBARBITAL SODIUM] [Concomitant]
     Indication: Partial seizures with secondary generalisation
     Dosage: 100 MG DAILY
     Dates: start: 20191217, end: 20191217
  28. AMMONIUM GLYCYRRHIZATE [Concomitant]
     Active Substance: AMMONIUM GLYCYRRHIZATE
     Indication: Drug eruption
     Dosage: UNK
  29. AMMONIUM GLYCYRRHIZATE [Concomitant]
     Active Substance: AMMONIUM GLYCYRRHIZATE
     Indication: Hepatic function abnormal
  30. GLYCINE [Concomitant]
     Active Substance: GLYCINE
     Indication: Drug eruption
     Dosage: UNK
  31. GLYCINE [Concomitant]
     Active Substance: GLYCINE
     Indication: Hepatic function abnormal
  32. L-CYSTEINE [CYSTEINE] [Concomitant]
     Indication: Drug eruption
     Dosage: UNK
  33. L-CYSTEINE [CYSTEINE] [Concomitant]
     Indication: Hepatic function abnormal
  34. POTASSIUM ASPARTATE [Concomitant]
     Active Substance: POTASSIUM ASPARTATE
     Indication: Hypokalaemia
     Dosage: UNK
  35. POTASSIUM GLUCONATE [Concomitant]
     Active Substance: POTASSIUM GLUCONATE
     Indication: Hypokalaemia
     Dosage: UNK
  36. ALBUMINAR [Concomitant]
     Active Substance: ALBUMIN HUMAN
     Indication: Hypoalbuminaemia
     Dosage: UNK
  37. FUROSEMIDE [Concomitant]
     Active Substance: FUROSEMIDE
     Indication: Renal impairment
     Dosage: UNK
  38. MIYA-BM [Concomitant]
     Active Substance: CLOSTRIDIUM BUTYRICUM SPORES STRAIN M-55
     Indication: Product used for unknown indication
     Dosage: 3 GRAM DAILY
     Route: 048
     Dates: start: 20200116
  39. IRRADIATED PLATELET CONCENTRATE, LEUKOCYTES R [Concomitant]
     Indication: Anaemia
  40. TOLVAPTAN [Concomitant]
     Active Substance: TOLVAPTAN
     Indication: Generalised oedema
  41. DOPAMINE HYDROCHLORIDE [Concomitant]
     Active Substance: DOPAMINE HYDROCHLORIDE
     Indication: Hypotension
  42. SODIUM ALGINATE [Concomitant]
     Active Substance: SODIUM ALGINATE
     Indication: Gastric mucosal lesion
  43. FAMOTIDINE [Concomitant]
     Active Substance: FAMOTIDINE
     Indication: Gastric mucosal lesion
  44. GABEXATE MESYLATE [Concomitant]
     Active Substance: GABEXATE MESYLATE
     Indication: Gastric mucosal lesion

REACTIONS (15)
  - Spinocerebellar disorder [Fatal]
  - Anaemia [Not Recovered/Not Resolved]
  - Generalised oedema [Not Recovered/Not Resolved]
  - Pneumonia bacterial [Recovered/Resolved]
  - Hypokalaemia [Recovered/Resolved]
  - Cholecystitis acute [Recovered/Resolved]
  - Renal impairment [Not Recovered/Not Resolved]
  - Hypotension [Not Recovered/Not Resolved]
  - Gastric mucosal lesion [Not Recovered/Not Resolved]
  - Drug eruption [Recovered/Resolved]
  - Urinary tract infection [Recovered/Resolved]
  - Hepatic function abnormal [Recovered/Resolved]
  - Hypoalbuminaemia [Not Recovered/Not Resolved]
  - Folliculitis [Recovered/Resolved]
  - Off label use [Unknown]

NARRATIVE: CASE EVENT DATE: 20191212
